FAERS Safety Report 8477217-2 (Version None)
Quarter: 2012Q2

REPORT INFORMATION
  Report Type: 
  Country: None (occurrence: None)
  Receive Date: 20120625
  Receipt Date: 20120625
  Transmission Date: 20120825
  Serious: Yes (Disabling, Other)
  Sender: FDA-Public Use
  Company Number: None

PATIENT
  Age: 76 Year
  Sex: Male
  Weight: 113.3993 kg

DRUGS (3)
  1. CLONAZEPAM [Suspect]
     Indication: ANXIETY
     Dosage: .5 MG 3 PO
     Route: 048
     Dates: start: 19940101, end: 20120615
  2. CLONAZEPAM [Suspect]
     Indication: MUSCLE TIGHTNESS
     Dosage: .5 MG 3 PO
     Route: 048
     Dates: start: 19940101, end: 20120615
  3. KLONOPIN [Concomitant]

REACTIONS (3)
  - PARANOIA [None]
  - AGITATION [None]
  - MEMORY IMPAIRMENT [None]
